FAERS Safety Report 7723329-8 (Version None)
Quarter: 2011Q3

REPORT INFORMATION
  Report Type: 
  Country: None (occurrence: None)
  Receive Date: 20110901
  Receipt Date: 20110901
  Transmission Date: 20111222
  Serious: Yes (Other)
  Sender: FDA-Public Use
  Company Number: None

PATIENT
  Age: 55 Year
  Sex: Male
  Weight: 88.45 kg

DRUGS (2)
  1. PERPHENAZINE [Concomitant]
     Indication: SCHIZOPHRENIA
     Dates: start: 20100410, end: 20100520
  2. LOXAPINE HCL [Suspect]
     Indication: SCHIZOPHRENIA
     Dosage: 1 AT BEDTIME
     Dates: start: 20110728, end: 20110821

REACTIONS (4)
  - TOXICITY TO VARIOUS AGENTS [None]
  - GAIT DISTURBANCE [None]
  - ASTHENIA [None]
  - FEELING ABNORMAL [None]
